FAERS Safety Report 5283245-0 (Version None)
Quarter: 2007Q2

REPORT INFORMATION
  Report Type: 
  Country: None (occurrence: None)
  Receive Date: 20070402
  Receipt Date: 20070326
  Transmission Date: 20071010
  Serious: Yes (Other)
  Sender: FDA-Public Use
  Company Number: CI-GLAXOSMITHKLINE-B0464421A

PATIENT
  Age: 11 Year
  Sex: Male

DRUGS (2)
  1. AUGMENTIN '125' [Suspect]
     Indication: OTITIS MEDIA ACUTE
  2. CELESTENE [Suspect]

REACTIONS (2)
  - ANGIOEDEMA [None]
  - RASH [None]
